FAERS Safety Report 4564587-0 (Version None)
Quarter: 2005Q1

REPORT INFORMATION
  Report Type: 
  Country: None (occurrence: None)
  Receive Date: 20050126
  Receipt Date: 20050112
  Transmission Date: 20050727
  Serious: Yes (Death, Hospitalization)
  Sender: FDA-Public Use
  Company Number: 2002126763SE

PATIENT
  Age: 68 Year
  Sex: Female

DRUGS (7)
  1. CELEBRA [Suspect]
     Indication: ILL-DEFINED DISORDER
     Dates: end: 20020217
  2. ENTACAPONE (ENTACAPONE) [Suspect]
     Indication: PARKINSON'S DISEASE
     Dates: start: 20010901, end: 20020217
  3. SINEMET [Concomitant]
  4. MADOPAR (BENSERAZIDE HYDROCHLORIDE, LEVODOPA) [Concomitant]
  5. CYANOCOBALAMIN (CYANOCOBALAMIN) [Concomitant]
  6. FLUNITRAZEPAM (FLUNITRAZEPAM) [Concomitant]
  7. MIRTAZAPINE [Concomitant]

REACTIONS (13)
  - ABDOMINAL ADHESIONS [None]
  - BLOOD PRESSURE DECREASED [None]
  - CARDIAC ARREST [None]
  - CARDIAC FAILURE [None]
  - CATHETER SITE RELATED REACTION [None]
  - COLD SWEAT [None]
  - FATIGUE [None]
  - GASTROINTESTINAL PERFORATION [None]
  - ILEUS [None]
  - NECROSIS [None]
  - PALLOR [None]
  - POOR PERIPHERAL CIRCULATION [None]
  - POST PROCEDURAL COMPLICATION [None]
